FAERS Safety Report 4640377-5 (Version None)
Quarter: 2005Q2

REPORT INFORMATION
  Report Type: 
  Country: None (occurrence: None)
  Receive Date: 20050420
  Receipt Date: 20050406
  Transmission Date: 20051028
  Serious: Yes (Hospitalization)
  Sender: FDA-Public Use
  Company Number: US-GLAXOSMITHKLINE-A0553123A

PATIENT
  Age: 67 Year
  Sex: Male
  Weight: 59.1 kg

DRUGS (1)
  1. NICORETTE (MINT) [Suspect]
     Indication: EX-SMOKER
     Route: 002
     Dates: start: 20030501

REACTIONS (5)
  - CHRONIC OBSTRUCTIVE PULMONARY DISEASE [None]
  - COLLAPSE OF LUNG [None]
  - DRUG ABUSER [None]
  - LUNG DISORDER [None]
  - PULMONARY MASS [None]
